FAERS Safety Report 7554472-4 (Version None)
Quarter: 2011Q2

REPORT INFORMATION
  Report Type: 
  Country: None (occurrence: None)
  Receive Date: 20110617
  Receipt Date: 20110612
  Transmission Date: 20111010
  Serious: Yes (Death)
  Sender: FDA-Public Use
  Company Number: A0931648A

PATIENT
  Age: 75 Year
  Sex: Male

DRUGS (1)
  1. VENTOLIN HFA [Suspect]
     Route: 055
     Dates: start: 20090716, end: 20110610

REACTIONS (1)
  - EMPHYSEMA [None]
